FAERS Safety Report 7098247-1 (Version None)
Quarter: 2010Q4

REPORT INFORMATION
  Report Type: 
  Country: None (occurrence: None)
  Receive Date: 20101112
  Receipt Date: 20101101
  Transmission Date: 20110411
  Serious: Yes (Other)
  Sender: FDA-Public Use
  Company Number: CA-SANOFI-AVENTIS-2010SA048773

PATIENT
  Age: 70 Year
  Sex: Female

DRUGS (9)
  1. MULTAQ [Suspect]
     Indication: CARDIAC ABLATION
     Dosage: 400 MG MORNING, 200 MG EVENING
     Route: 048
     Dates: start: 20090801, end: 20091101
  2. MULTAQ [Suspect]
     Indication: ATRIAL FIBRILLATION
     Dosage: 400 MG MORNING, 200 MG EVENING
     Route: 048
     Dates: start: 20090801, end: 20091101
  3. MULTAQ [Suspect]
     Route: 048
     Dates: start: 20091101
  4. MULTAQ [Suspect]
     Route: 048
     Dates: start: 20091101
  5. AVAPRO [Concomitant]
     Route: 048
     Dates: start: 20090801, end: 20100401
  6. COUMADIN [Concomitant]
     Route: 048
     Dates: end: 20100423
  7. ROSUVASTATIN [Concomitant]
     Route: 048
  8. ASPIRIN [Concomitant]
     Route: 048
  9. FLONASE [Concomitant]
     Dosage: 1-2 SPRAYS IN THE MORNING
     Route: 045

REACTIONS (9)
  - ATRIAL FIBRILLATION [None]
  - DISCOMFORT [None]
  - DRY MOUTH [None]
  - DYSPNOEA [None]
  - HYPERTENSION [None]
  - INSOMNIA [None]
  - NAUSEA [None]
  - PALPITATIONS [None]
  - UNDERDOSE [None]
